FAERS Safety Report 9124502 (Version 1)
Quarter: 2013Q1

REPORT INFORMATION
  Report Type: Spontaneous
  Country: US (occurrence: US)
  Receive Date: 20130227
  Receipt Date: 20130227
  Transmission Date: 20140127
  Serious: Yes (Hospitalization)
  Sender: FDA-Public Use
  Company Number: US-ASTRAZENECA-2013SE11179

PATIENT
  Age: 69 Year
  Sex: Female
  Weight: 56.2 kg

DRUGS (18)
  1. TOPROL XL [Suspect]
     Indication: HEART RATE INCREASED
     Route: 048
     Dates: end: 2006
  2. TOPROL XL [Suspect]
     Indication: HYPERTENSION
     Route: 048
     Dates: end: 2006
  3. TOPROL XL [Suspect]
     Indication: HEART RATE INCREASED
     Dosage: DAILY, UNKNOWN MANUFACTURER
     Route: 048
     Dates: start: 2006, end: 2006
  4. TOPROL XL [Suspect]
     Indication: HYPERTENSION
     Dosage: DAILY, UNKNOWN MANUFACTURER
     Route: 048
     Dates: start: 2006, end: 2006
  5. TOPROL XL [Suspect]
     Indication: HEART RATE INCREASED
     Route: 048
     Dates: start: 2006
  6. TOPROL XL [Suspect]
     Indication: HYPERTENSION
     Route: 048
     Dates: start: 2006
  7. TOPROL XL [Suspect]
     Indication: HEART RATE INCREASED
     Dosage: 25 MG, ONCE IN THE MORNING AND ONCE IN THE EVENING
     Route: 048
  8. TOPROL XL [Suspect]
     Indication: HYPERTENSION
     Dosage: 25 MG, ONCE IN THE MORNING AND ONCE IN THE EVENING
     Route: 048
  9. BENDAMUSTINE AND RITUXIMAB AND PEGFILGRASTIM [Concomitant]
     Indication: LEUKAEMIA
     Dates: start: 201302
  10. RITUXAN [Concomitant]
     Indication: LEUKAEMIA
     Dates: start: 200909, end: 2009
  11. RITUXAN [Concomitant]
     Indication: LEUKAEMIA
     Dates: start: 201107, end: 2011
  12. IVIG IMMUNOGLOBULIN [Concomitant]
     Indication: LEUKAEMIA
     Dosage: 8 DIFFERENT SESSIONS
     Dates: start: 2013
  13. MULTIVITAMIN [Concomitant]
     Indication: VITAMIN SUPPLEMENTATION
  14. EXTRA VITAMIN D [Concomitant]
     Indication: VITAMIN SUPPLEMENTATION
     Dosage: 1000, FREQUENCY UNKNOWN
  15. EXTRA VITAMIN E [Concomitant]
     Indication: VITAMIN SUPPLEMENTATION
     Dosage: 1000, FREQUENCY UNKNOWN
  16. CALCIUM MAGNESIUM AND ZINC COMBINATION VITAMIN [Concomitant]
     Indication: VITAMIN SUPPLEMENTATION
     Dosage: DAILY, CONTAINS 200 MG OF VITAMIN D, 333 MG OF CALCIUM, 133 MG OF MAGNESIUM, AND 5 MG OF ZINC
  17. FOSAMAX [Concomitant]
     Indication: BONE DENSITY DECREASED
     Dates: start: 2004, end: 2012
  18. NIACIN [Concomitant]
     Indication: VITAMIN SUPPLEMENTATION

REACTIONS (10)
  - Leukaemia [Unknown]
  - Heart rate increased [Unknown]
  - Hypertension [Unknown]
  - Feeling abnormal [Unknown]
  - Malaise [Unknown]
  - Malaise [Unknown]
  - Body height decreased [Unknown]
  - Insomnia [Unknown]
  - Incorrect dose administered [Unknown]
  - Drug ineffective [Unknown]
